FAERS Safety Report 6992203-7 (Version None)
Quarter: 2010Q3

REPORT INFORMATION
  Report Type: 
  Country: None (occurrence: None)
  Receive Date: 20100917
  Receipt Date: 20100913
  Transmission Date: 20110219
  Serious: Yes (Death, Life-Threatening)
  Sender: FDA-Public Use
  Company Number: US-BRISTOL-MYERS SQUIBB COMPANY-15198872

PATIENT
  Age: 82 Year
  Sex: Male

DRUGS (10)
  1. ERBITUX [Suspect]
     Indication: COLON CANCER METASTATIC
     Dosage: 765 MG WAS EXPECTED TO BE INFUSED
     Route: 042
     Dates: start: 20100429
  2. COUMADIN [Concomitant]
  3. COREG [Concomitant]
     Dosage: 1DF-6.25(UNITS NOT SPECIFIED)
  4. DIGOXIN [Concomitant]
  5. LISINOPRIL [Concomitant]
  6. FUROSEMIDE [Concomitant]
  7. BENADRYL [Concomitant]
     Indication: PREMEDICATION
     Route: 042
  8. ALOXI [Concomitant]
     Indication: PREMEDICATION
     Route: 042
  9. DEXAMETHASONE [Concomitant]
     Indication: PREMEDICATION
     Route: 042
  10. EPINEPHRINE [Concomitant]

REACTIONS (5)
  - ACUTE MYOCARDIAL INFARCTION [None]
  - CARDIAC ARREST [None]
  - DRUG HYPERSENSITIVITY [None]
  - HYPOXIC-ISCHAEMIC ENCEPHALOPATHY [None]
  - RESPIRATORY ARREST [None]
